FAERS Safety Report 21095505 (Version 2)
Quarter: 2022Q3

REPORT INFORMATION
  Report Type: Spontaneous
  Country: TH (occurrence: TH)
  Receive Date: 20220718
  Receipt Date: 20220722
  Transmission Date: 20221026
  Serious: Yes (Life-Threatening, Hospitalization, Other)
  Sender: FDA-Public Use
  Company Number: TH-AMGEN-THASP2022119626

PATIENT
  Age: 67 Year
  Sex: Female

DRUGS (1)
  1. PROLIA [Suspect]
     Active Substance: DENOSUMAB
     Indication: Osteoporosis postmenopausal
     Dosage: UNK, Q6MO
     Route: 065
     Dates: start: 201905

REACTIONS (2)
  - Pulmonary alveolar haemorrhage [Recovering/Resolving]
  - Antineutrophil cytoplasmic antibody positive [Unknown]
